FAERS Safety Report 18059168 (Version 1)
Quarter: 2020Q3

REPORT INFORMATION
  Report Type: Spontaneous
  Country: US (occurrence: US)
  Receive Date: 20200722
  Receipt Date: 20200722
  Transmission Date: 20201103
  Serious: Yes (Other)
  Sender: FDA-Public Use
  Company Number: None

PATIENT
  Age: 83 Year
  Sex: Male

DRUGS (14)
  1. ASPIRIN. [Concomitant]
     Active Substance: ASPIRIN
  2. WARFARIN [Concomitant]
     Active Substance: WARFARIN
  3. FERROUS SULFATE. [Concomitant]
     Active Substance: FERROUS SULFATE
  4. ATORVASTATIN [Concomitant]
     Active Substance: ATORVASTATIN
  5. HYDROCORTISONE TOP LOTION [Concomitant]
  6. OPSUMIT [Suspect]
     Active Substance: MACITENTAN
     Indication: PULMONARY HYPERTENSION
     Route: 048
     Dates: start: 201906, end: 202002
  7. FUROSEMIDE. [Concomitant]
     Active Substance: FUROSEMIDE
  8. METFORMIN [Concomitant]
     Active Substance: METFORMIN HYDROCHLORIDE
  9. DICLOFENAC TOP GEL [Concomitant]
  10. TRIAMCINOLONE TOP OINT [Concomitant]
  11. GLYBURIDE. [Concomitant]
     Active Substance: GLYBURIDE
  12. FISH OIL [Concomitant]
     Active Substance: FISH OIL
  13. SILDENAFIL. [Concomitant]
     Active Substance: SILDENAFIL
  14. LINAGLIPTIN [Concomitant]
     Active Substance: LINAGLIPTIN

REACTIONS (2)
  - Anaemia [None]
  - Therapy interrupted [None]

NARRATIVE: CASE EVENT DATE: 20200603
